FAERS Safety Report 24812212 (Version 1)
Quarter: 2025Q1

REPORT INFORMATION
  Report Type: Spontaneous
  Country: US (occurrence: None)
  Receive Date: 20250106
  Receipt Date: 20250106
  Transmission Date: 20250408
  Serious: No
  Sender: FDA-CTU
  Company Number: None

PATIENT
  Age: 80 Year
  Sex: Male

DRUGS (1)
  1. XDEMVY [Suspect]
     Active Substance: LOTILANER
     Indication: Eye infection
     Dosage: 1 GTT DROP(S) TWICE A DAY TOPICAL
     Route: 061
     Dates: start: 20241015

REACTIONS (3)
  - Therapeutic product effect decreased [None]
  - Wrong technique in product usage process [None]
  - Tremor [None]

NARRATIVE: CASE EVENT DATE: 20241015
